FAERS Safety Report 14434214 (Version 1)
Quarter: 2018Q1

REPORT INFORMATION
  Report Type: Spontaneous
  Country: AT (occurrence: AT)
  Receive Date: 20180124
  Receipt Date: 20180124
  Transmission Date: 20180509
  Serious: Yes (Death, Other)
  Sender: FDA-Public Use
  Company Number: AT-ELI_LILLY_AND_COMPANY-AT201801007982

PATIENT
  Age: 25 Year
  Sex: Female

DRUGS (2)
  1. GEMCITABINE HYDROCHLORIDE. [Suspect]
     Active Substance: GEMCITABINE HYDROCHLORIDE
     Indication: EPITHELIOID SARCOMA
     Dosage: UNK UNK, UNKNOWN
     Route: 065
     Dates: start: 201209, end: 201210
  2. VOTRIENT [Suspect]
     Active Substance: PAZOPANIB HYDROCHLORIDE
     Indication: EPITHELIOID SARCOMA
     Dosage: UNK UNK, UNKNOWN
     Route: 065
     Dates: start: 201305

REACTIONS (3)
  - Metastases to central nervous system [Fatal]
  - Death [Fatal]
  - Off label use [Unknown]

NARRATIVE: CASE EVENT DATE: 201207
